FAERS Safety Report 25094843 (Version 1)
Quarter: 2025Q1

REPORT INFORMATION
  Report Type: Spontaneous
  Country: US (occurrence: None)
  Receive Date: 20250319
  Receipt Date: 20250319
  Transmission Date: 20250409
  Serious: Yes (Hospitalization)
  Sender: FDA-CTU
  Company Number: None

PATIENT
  Age: 53 Year
  Sex: Male
  Weight: 68.5 kg

DRUGS (1)
  1. CISPLATIN [Suspect]
     Active Substance: CISPLATIN

REACTIONS (5)
  - Unresponsive to stimuli [None]
  - Hypoxia [None]
  - Troponin increased [None]
  - Laryngeal oedema [None]
  - Laryngeal oedema [None]

NARRATIVE: CASE EVENT DATE: 20250204
